FAERS Safety Report 4917794-9 (Version None)
Quarter: 2006Q1

REPORT INFORMATION
  Report Type: 
  Country: None (occurrence: None)
  Receive Date: 20060214
  Receipt Date: 20060125
  Transmission Date: 20060701
  Serious: Yes (Other)
  Sender: FDA-Public Use
  Company Number: FR200601004367

PATIENT
  Age: 56 Year
  Sex: Female

DRUGS (6)
  1. RALOXIFENE HCL [Suspect]
     Indication: OSTEOPOROSIS
     Dosage: 60 MG, DAILY (1/D), ORAL
     Route: 048
     Dates: start: 20041001, end: 20050501
  2. DAFLON (DIOSMIN) [Concomitant]
  3. FONZYLANE (BUFLOMEDIL HYDROCHLORIDE) [Concomitant]
  4. PIASCLEDINE (PERSEAE OLEUM, SOYA OIL) [Concomitant]
  5. ANTIDEPRESSANTS [Concomitant]
  6. ANXIOLYTICS [Concomitant]

REACTIONS (1)
  - BREAST CANCER FEMALE [None]
